FAERS Safety Report 12860611 (Version 1)
Quarter: 2016Q4

REPORT INFORMATION
  Report Type: Spontaneous
  Country: US (occurrence: US)
  Receive Date: 20161019
  Receipt Date: 20161019
  Transmission Date: 20170207
  Serious: Yes (Hospitalization, Other)
  Sender: FDA-Public Use
  Company Number: US-PFIZER INC-2016484254

PATIENT
  Age: 6 Decade
  Sex: Female

DRUGS (1)
  1. ALPRAZOLAM. [Suspect]
     Active Substance: ALPRAZOLAM
     Indication: NERVE INJURY
     Dosage: 0.25 MG, 3X/DAY
     Route: 048

REACTIONS (8)
  - Malaise [Unknown]
  - Diarrhoea [Unknown]
  - Inflammation [Unknown]
  - Colitis ulcerative [Unknown]
  - Anxiety [Unknown]
  - Product use issue [Unknown]
  - Nervousness [Unknown]
  - Condition aggravated [Unknown]
